FAERS Safety Report 9364151 (Version 1)
Quarter: 2013Q2

REPORT INFORMATION
  Report Type: Spontaneous
  Country: US (occurrence: US)
  Receive Date: 20130624
  Receipt Date: 20130624
  Transmission Date: 20140414
  Serious: No
  Sender: FDA-Public Use
  Company Number: US-MYLANLABS-2013S1004790

PATIENT
  Age: 45 Year
  Sex: Female
  Weight: 88.45 kg

DRUGS (4)
  1. FENTANYL TRANSDERMAL SYSTEM [Suspect]
     Indication: PAIN
     Dosage: Q 48H
     Route: 062
     Dates: start: 2007, end: 201301
  2. CYCLOBENZAPRINE HYDROCHLORIDE [Suspect]
     Indication: PAIN
  3. FIORICET [Suspect]
     Indication: PAIN
  4. LIDODERM [Suspect]
     Indication: PAIN
     Route: 062

REACTIONS (1)
  - Drug screen false positive [Not Recovered/Not Resolved]
